FAERS Safety Report 16304108 (Version 2)
Quarter: 2019Q3

REPORT INFORMATION
  Report Type: Spontaneous
  Country: US (occurrence: US)
  Receive Date: 20190513
  Receipt Date: 20190930
  Transmission Date: 20191004
  Serious: No
  Sender: FDA-Public Use
  Company Number: US-HTU-2019US018791

PATIENT
  Age: 68 Year
  Sex: Male

DRUGS (2)
  1. VALCHLOR [Suspect]
     Active Substance: MECHLORETHAMINE
     Dosage: UNK, QD
     Route: 061
     Dates: start: 20190327
  2. VALCHLOR [Suspect]
     Active Substance: MECHLORETHAMINE
     Indication: B-CELL LYMPHOMA
     Dosage: UNK, QD
     Route: 061
     Dates: start: 201903, end: 201903

REACTIONS (3)
  - Neuralgia [Not Recovered/Not Resolved]
  - Impaired work ability [Not Recovered/Not Resolved]
  - Off label use [Not Recovered/Not Resolved]

NARRATIVE: CASE EVENT DATE: 201903
